FAERS Safety Report 10088073 (Version 1)
Quarter: 2014Q2

REPORT INFORMATION
  Report Type: Spontaneous
  Country: TR (occurrence: TR)
  Receive Date: 20140421
  Receipt Date: 20140421
  Transmission Date: 20141212
  Serious: Yes (Other)
  Sender: FDA-Public Use
  Company Number: PHHY2014TR043821

PATIENT
  Sex: Male

DRUGS (2)
  1. PRAMIPEXOLE [Suspect]
     Indication: PARKINSON^S DISEASE
     Dosage: MATERNAL DOSE 1.5 MG TID
     Route: 064
  2. PRAMIPEXOLE [Suspect]
     Dosage: MATERNAL DOSE 2 MG TID
     Route: 064

REACTIONS (2)
  - Premature baby [Unknown]
  - Foetal exposure during pregnancy [Unknown]
